FAERS Safety Report 18357267 (Version 1)
Quarter: 2020Q4

REPORT INFORMATION
  Report Type: Spontaneous
  Country: US (occurrence: US)
  Receive Date: 20201007
  Receipt Date: 20201007
  Transmission Date: 20210114
  Serious: No
  Sender: FDA-Public Use
  Company Number: US-BEH-2020122880

PATIENT
  Sex: Male

DRUGS (9)
  1. HAEGARDA [Suspect]
     Active Substance: HUMAN C1-ESTERASE INHIBITOR
     Indication: PROPHYLAXIS
  2. HAEGARDA [Suspect]
     Active Substance: HUMAN C1-ESTERASE INHIBITOR
     Indication: PROPHYLAXIS
  3. KETOROLAC TROMETAMINA [Concomitant]
  4. PREDNISOLONE. [Concomitant]
     Active Substance: PREDNISOLONE
  5. PREDNISONE. [Concomitant]
     Active Substance: PREDNISONE
     Dosage: 5 MILLIGRAM
  6. PANTOPRAZOLE [Concomitant]
     Active Substance: PANTOPRAZOLE
     Dosage: 40 MILLIGRAM
  7. HAEGARDA [Suspect]
     Active Substance: HUMAN C1-ESTERASE INHIBITOR
     Indication: HEREDITARY ANGIOEDEMA
     Dosage: 5000 INTERNATIONAL UNIT (3000+2000 UNIT VIALS) TWICE WEEKLY (EVERY 3 OR 4 DAYS)
     Route: 058
     Dates: start: 201912
  8. HAEGARDA [Suspect]
     Active Substance: HUMAN C1-ESTERASE INHIBITOR
     Indication: HEREDITARY ANGIOEDEMA
     Dosage: 5000 INTERNATIONAL UNIT (3000+2000 UNIT VIALS) TWICE WEEKLY (EVERY 3 OR 4 DAYS)
     Route: 058
     Dates: start: 201912
  9. DANAZOL. [Concomitant]
     Active Substance: DANAZOL
     Dosage: 200 MILLIGRAM

REACTIONS (1)
  - Infusion site pain [Recovered/Resolved]
